FAERS Safety Report 9166246 (Version 1)
Quarter: 2013Q1

REPORT INFORMATION
  Report Type: Spontaneous
  Country: FR (occurrence: None)
  Receive Date: 20130301
  Receipt Date: 20130301
  Transmission Date: 20140127
  Serious: Yes (Other)
  Sender: FDA-Public Use
  Company Number: 1611266

PATIENT
  Age: 72 Year
  Sex: Female
  Weight: 64 kg

DRUGS (2)
  1. OXALIPLATIN [Suspect]
     Indication: NEOPLASM MALIGNANT
     Route: 042
     Dates: start: 20121016, end: 20121113
  2. RALTITREXED DISODIUM [Concomitant]

REACTIONS (4)
  - Hypertension [None]
  - Vertigo [None]
  - Musculoskeletal disorder [None]
  - Eyelid ptosis [None]
